FAERS Safety Report 8583892-4 (Version None)
Quarter: 2012Q3

REPORT INFORMATION
  Report Type: 
  Country: None (occurrence: None)
  Receive Date: 20120810
  Receipt Date: 20120802
  Transmission Date: 20120928
  Serious: Yes (Other)
  Sender: FDA-Public Use
  Company Number: US-009507513-1208USA002372

PATIENT

DRUGS (3)
  1. RIBAVIRIN [Suspect]
     Indication: HEPATITIS C
     Dosage: UNK
  2. PEG-INTRON [Suspect]
     Indication: HEPATITIS C
     Dosage: UNK
  3. VICTRELIS [Suspect]
     Indication: HEPATITIS C
     Dosage: UNK

REACTIONS (4)
  - THYROID DISORDER [None]
  - EYE DISORDER [None]
  - BLINDNESS UNILATERAL [None]
  - ANAEMIA [None]
